FAERS Safety Report 7910111-1 (Version None)
Quarter: 2011Q4

REPORT INFORMATION
  Report Type: 
  Country: None (occurrence: None)
  Receive Date: 20111111
  Receipt Date: 20111026
  Transmission Date: 20120403
  Serious: Yes (Hospitalization)
  Sender: FDA-Public Use
  Company Number: US-ROCHE-GNE313935

PATIENT
  Sex: Female
  Weight: 1.476 kg

DRUGS (2)
  1. OMALIZUMAB [Suspect]
     Indication: ASTHMA
     Route: 064
  2. OMALIZUMAB [Suspect]
     Dosage: UNK
     Route: 063
     Dates: start: 20110208

REACTIONS (1)
  - PREMATURE BABY [None]
